FAERS Safety Report 18169540 (Version 2)
Quarter: 2020Q4

REPORT INFORMATION
  Report Type: Spontaneous
  Country: JP (occurrence: JP)
  Receive Date: 20200818
  Receipt Date: 20201007
  Transmission Date: 20210113
  Serious: Yes (Hospitalization, Other)
  Sender: FDA-Public Use
  Company Number: JP-009507513-2008JPN001361J

PATIENT
  Age: 6 Decade
  Sex: Male

DRUGS (3)
  1. 5-FU [Suspect]
     Active Substance: FLUOROURACIL
     Indication: NASAL SINUS CANCER
     Dosage: 1000 MILLIGRAM/SQ. METER
     Route: 041
     Dates: start: 20200727, end: 20200729
  2. CISPLATIN. [Concomitant]
     Active Substance: CISPLATIN
     Indication: NASAL SINUS CANCER
     Dosage: 100 MILLIGRAM/SQ. METER, QD
     Route: 041
     Dates: start: 20200727, end: 20200729
  3. KEYTRUDA [Suspect]
     Active Substance: PEMBROLIZUMAB
     Indication: NASAL SINUS CANCER
     Dosage: 200 MILLIGRAM, Q3W
     Route: 041
     Dates: start: 20200727

REACTIONS (2)
  - Loss of consciousness [Recovered/Resolved]
  - Presyncope [Unknown]

NARRATIVE: CASE EVENT DATE: 20200729
